FAERS Safety Report 7372137-9 (Version None)
Quarter: 2011Q1

REPORT INFORMATION
  Report Type: 
  Country: None (occurrence: None)
  Receive Date: 20110324
  Receipt Date: 20110315
  Transmission Date: 20110831
  Serious: Yes (Other)
  Sender: FDA-Public Use
  Company Number: JP-ROCHE-767118

PATIENT
  Sex: Female

DRUGS (30)
  1. TOCILIZUMAB [Suspect]
     Route: 041
     Dates: start: 20081119, end: 20081119
  2. TOCILIZUMAB [Suspect]
     Route: 041
     Dates: start: 20090212, end: 20090212
  3. TOCILIZUMAB [Suspect]
     Route: 041
     Dates: start: 20090311, end: 20090311
  4. TOCILIZUMAB [Suspect]
     Route: 041
     Dates: start: 20090507, end: 20090507
  5. TOCILIZUMAB [Suspect]
     Route: 041
     Dates: start: 20090730, end: 20090730
  6. TOCILIZUMAB [Suspect]
     Route: 041
     Dates: start: 20100113, end: 20100113
  7. TOCILIZUMAB [Suspect]
     Route: 041
     Dates: start: 20100630, end: 20100630
  8. TOCILIZUMAB [Suspect]
     Route: 041
     Dates: start: 20081022, end: 20081022
  9. TOCILIZUMAB [Suspect]
     Route: 041
     Dates: start: 20081217, end: 20081217
  10. TOCILIZUMAB [Suspect]
     Route: 041
     Dates: start: 20100728, end: 20100728
  11. PREDONINE [Concomitant]
     Route: 048
     Dates: end: 20081217
  12. TOCILIZUMAB [Suspect]
     Route: 041
     Dates: start: 20090115, end: 20090115
  13. TOCILIZUMAB [Suspect]
     Route: 041
     Dates: start: 20090826, end: 20090826
  14. TOCILIZUMAB [Suspect]
     Route: 041
     Dates: start: 20090408, end: 20090408
  15. TOCILIZUMAB [Suspect]
     Route: 041
     Dates: start: 20090924, end: 20090924
  16. TOCILIZUMAB [Suspect]
     Indication: RHEUMATOID ARTHRITIS
     Route: 041
     Dates: start: 20080730, end: 20080730
  17. TOCILIZUMAB [Suspect]
     Route: 041
     Dates: start: 20090604, end: 20090604
  18. TOCILIZUMAB [Suspect]
     Route: 041
     Dates: start: 20100210, end: 20100210
  19. PREDONINE [Concomitant]
     Route: 048
     Dates: start: 20081218
  20. TOCILIZUMAB [Suspect]
     Route: 041
     Dates: start: 20080924, end: 20080924
  21. TOCILIZUMAB [Suspect]
     Route: 041
     Dates: start: 20091118, end: 20091118
  22. MUCOSTA [Concomitant]
     Route: 048
     Dates: end: 20080924
  23. TOCILIZUMAB [Suspect]
     Route: 041
     Dates: start: 20090702, end: 20090702
  24. TOCILIZUMAB [Suspect]
     Route: 041
     Dates: start: 20091216, end: 20091216
  25. TOCILIZUMAB [Suspect]
     Dosage: DOSAGE IS UNCERTAIN
     Route: 041
     Dates: start: 20100427, end: 20100427
  26. TOCILIZUMAB [Suspect]
     Route: 041
     Dates: start: 20080827, end: 20080827
  27. TOCILIZUMAB [Suspect]
     Route: 041
     Dates: start: 20091021, end: 20091021
  28. TOCILIZUMAB [Suspect]
     Route: 041
     Dates: start: 20100310, end: 20100310
  29. TOCILIZUMAB [Suspect]
     Route: 041
     Dates: start: 20100602, end: 20100602
  30. LOXONIN [Concomitant]
     Dosage: DRUG: LOXONIN (LOXOPROFEN SODIUM)
     Route: 048
     Dates: end: 20080924

REACTIONS (3)
  - JOINT ARTHROPLASTY [None]
  - HYPERVENTILATION [None]
  - HAEMOGLOBIN DECREASED [None]
